FAERS Safety Report 10443695 (Version 1)
Quarter: 2014Q3

REPORT INFORMATION
  Report Type: Spontaneous
  Country: US (occurrence: None)
  Receive Date: 20140909
  Receipt Date: 20140909
  Transmission Date: 20150326
  Serious: Yes (Hospitalization)
  Sender: FDA-Public Use
  Company Number: None

PATIENT
  Age: 48 Year
  Sex: Female
  Weight: 63.96 kg

DRUGS (4)
  1. DILTIAZEM [Concomitant]
     Active Substance: DILTIAZEM
  2. HEPARIN [Concomitant]
     Active Substance: HEPARIN SODIUM
  3. AMIODARONE [Concomitant]
     Active Substance: AMIODARONE
  4. APIXIBAN 5 MG [Suspect]
     Active Substance: APIXABAN
     Indication: ATRIAL FIBRILLATION
     Route: 048

REACTIONS (2)
  - Haemorrhage [None]
  - Wound infection [None]

NARRATIVE: CASE EVENT DATE: 20140713
